FAERS Safety Report 7488670-5 (Version None)
Quarter: 2011Q2

REPORT INFORMATION
  Report Type: 
  Country: None (occurrence: None)
  Receive Date: 20110518
  Receipt Date: 20110412
  Transmission Date: 20111010
  Serious: Yes (Other)
  Sender: FDA-Public Use
  Company Number: B0713243A

PATIENT
  Sex: Female

DRUGS (6)
  1. DEPAS [Concomitant]
     Indication: INSOMNIA
     Dosage: 8MG PER DAY
     Route: 048
     Dates: start: 20101101
  2. TECIPUL [Concomitant]
     Indication: DEPRESSION
     Dosage: 2MG PER DAY
     Route: 048
     Dates: start: 20100910
  3. PAXIL [Suspect]
     Indication: DEPRESSION
     Dosage: 10MG PER DAY
     Route: 048
     Dates: start: 20101213
  4. ZYPREXA [Concomitant]
     Indication: INSOMNIA
     Dosage: 5MG PER DAY
     Route: 048
     Dates: start: 20100723
  5. LUVOX [Concomitant]
     Indication: HYPERVENTILATION
     Dosage: 100MG PER DAY
     Route: 048
     Dates: start: 20100827, end: 20101108
  6. MUCOSTA [Concomitant]
     Indication: INSOMNIA
     Dosage: 200MG PER DAY
     Route: 048
     Dates: start: 20101101

REACTIONS (4)
  - LIVE BIRTH [None]
  - PRE-ECLAMPSIA [None]
  - BLOOD PRESSURE INCREASED [None]
  - DRUG EXPOSURE DURING PREGNANCY [None]
